FAERS Safety Report 6017322-3 (Version None)
Quarter: 2008Q4

REPORT INFORMATION
  Report Type: 
  Country: None (occurrence: None)
  Receive Date: 20081223
  Receipt Date: 20080715
  Transmission Date: 20090506
  Serious: Yes (Other)
  Sender: FDA-Public Use
  Company Number: BR-BAYER-200816176LA

PATIENT
  Age: 28 Year
  Sex: Female
  Weight: 53 kg

DRUGS (1)
  1. YAZ [Suspect]
     Indication: ORAL CONTRACEPTION
     Route: 048
     Dates: start: 20080523

REACTIONS (7)
  - BREAST PAIN [None]
  - BREAST SWELLING [None]
  - DYSMENORRHOEA [None]
  - MENORRHAGIA [None]
  - MENSTRUAL DISORDER [None]
  - SOMNOLENCE [None]
  - VOMITING [None]
